FAERS Safety Report 6245024-7 (Version None)
Quarter: 2009Q2

REPORT INFORMATION
  Report Type: 
  Country: None (occurrence: None)
  Receive Date: 20090623
  Receipt Date: 20090623
  Transmission Date: 20091009
  Serious: Yes (Other)
  Sender: FDA-Public Use
  Company Number: None

PATIENT
  Age: 76 Year
  Sex: Female
  Weight: 57.6068 kg

DRUGS (1)
  1. ZETIA [Suspect]
     Indication: BLOOD CHOLESTEROL INCREASED
     Dosage: ONE TABLET
     Dates: start: 20090612, end: 20090612

REACTIONS (5)
  - EAR PAIN [None]
  - FATIGUE [None]
  - OEDEMA MOUTH [None]
  - PAIN IN JAW [None]
  - PHARYNGEAL OEDEMA [None]
